FAERS Safety Report 7765946-5 (Version None)
Quarter: 2011Q3

REPORT INFORMATION
  Report Type: 
  Country: None (occurrence: None)
  Receive Date: 20110921
  Receipt Date: 20110912
  Transmission Date: 20111222
  Serious: Yes (Disabling, Other)
  Sender: FDA-Public Use
  Company Number: CZ-CEPHALON-2011001923

PATIENT
  Sex: Male
  Weight: 62 kg

DRUGS (6)
  1. BORTEZOMIB [Suspect]
     Indication: MULTIPLE MYELOMA
     Route: 042
     Dates: start: 20110307, end: 20110314
  2. ZOVIRAX [Concomitant]
     Dates: start: 20110307
  3. SUMETROLIM [Concomitant]
     Dates: start: 20110307
  4. DICLOFENAC SODIUM [Concomitant]
     Dates: start: 20110317
  5. TREANDA [Suspect]
     Indication: MULTIPLE MYELOMA
     Route: 042
     Dates: start: 20110307, end: 20110310
  6. DEXAMETHASONE [Suspect]
     Indication: MULTIPLE MYELOMA
     Route: 048
     Dates: start: 20110307, end: 20110314

REACTIONS (2)
  - RETINAL HAEMORRHAGE [None]
  - RETINAL DETACHMENT [None]
